FAERS Safety Report 5717161-4 (Version None)
Quarter: 2008Q2

REPORT INFORMATION
  Report Type: 
  Country: None (occurrence: None)
  Receive Date: 20080424
  Receipt Date: 20080414
  Transmission Date: 20081010
  Serious: Yes (Other)
  Sender: FDA-Public Use
  Company Number: FR-PFIZER INC-2008032864

PATIENT
  Sex: Female
  Weight: 70 kg

DRUGS (7)
  1. ZYVOXID TABLET [Suspect]
     Indication: CENTRAL LINE INFECTION
     Route: 048
     Dates: start: 20080113, end: 20080116
  2. DEROXAT [Interacting]
     Indication: DEPRESSION
     Route: 048
     Dates: start: 20071224, end: 20071226
  3. DEROXAT [Interacting]
     Route: 048
     Dates: start: 20071227, end: 20080116
  4. RIFADIN [Concomitant]
     Route: 048
  5. TRIATEC [Concomitant]
  6. CORTANCYL [Concomitant]
  7. NEXIUM [Concomitant]

REACTIONS (5)
  - DRUG INTERACTION [None]
  - EXTRAPYRAMIDAL DISORDER [None]
  - HYPERTENSION [None]
  - SEROTONIN SYNDROME [None]
  - TREMOR [None]
